FAERS Safety Report 5196962-8 (Version None)
Quarter: 2006Q4

REPORT INFORMATION
  Report Type: 
  Country: None (occurrence: None)
  Receive Date: 20061227
  Receipt Date: 20061213
  Transmission Date: 20070319
  Serious: Yes (Hospitalization, Other)
  Sender: FDA-Public Use
  Company Number: 2006149371

PATIENT
  Age: 50 Year
  Sex: Male
  Weight: 52 kg

DRUGS (1)
  1. SU-011,248 (SUNITINIB  MALATE) [Suspect]
     Indication: METASTATIC RENAL CELL CARCINOMA
     Dosage: 50 MG (50 MG, OD: DAILY), ORAL
     Route: 048

REACTIONS (8)
  - DEHYDRATION [None]
  - FATIGUE [None]
  - HYPERTENSION [None]
  - RENAL FAILURE [None]
  - SEPTIC SHOCK [None]
  - STOMATITIS [None]
  - THROMBOCYTOPENIA [None]
  - YELLOW SKIN [None]
